FAERS Safety Report 11735359 (Version 5)
Quarter: 2016Q1

REPORT INFORMATION
  Report Type: Spontaneous
  Country: US (occurrence: US)
  Receive Date: 20151113
  Receipt Date: 20160304
  Transmission Date: 20160525
  Serious: Yes (Hospitalization)
  Sender: FDA-Public Use
  Company Number: US-ACTELION-A-US2013-83173

PATIENT
  Age: 54 Year
  Sex: Male

DRUGS (2)
  1. TRACLEER [Suspect]
     Active Substance: BOSENTAN
     Indication: PULMONARY ARTERIAL HYPERTENSION
     Dosage: 62.5 MG, UNK
     Route: 048
  2. ADCIRCA [Concomitant]
     Active Substance: TADALAFIL

REACTIONS (10)
  - Staphylococcal infection [Recovered/Resolved]
  - Syncope [Unknown]
  - Pneumonia [Recovered/Resolved]
  - Fluid retention [Recovering/Resolving]
  - Influenza B virus test positive [Recovered/Resolved]
  - Weight increased [Recovering/Resolving]
  - Pharyngitis streptococcal [Recovered/Resolved]
  - Cough [Recovered/Resolved]
  - Oedema [Recovering/Resolving]
  - Dyspnoea [Recovered/Resolved]

NARRATIVE: CASE EVENT DATE: 20130508
